FAERS Safety Report 8896218 (Version 1)
Quarter: 2012Q4

REPORT INFORMATION
  Report Type: 
  Country: UA (occurrence: UA)
  Receive Date: 20121108
  Receipt Date: 20121108
  Transmission Date: 20130627
  Serious: Yes (Congenital Anomaly)
  Sender: FDA-Public Use
  Company Number: UA-ABBOTT-12P-232-1001860-00

PATIENT
  Sex: Female

DRUGS (1)
  1. DUPHASTON [Suspect]
     Indication: MATERNAL EXPOSURE TIMING UNSPECIFIED
     Route: 064

REACTIONS (5)
  - Pseudohermaphroditism female [Unknown]
  - Enlarged clitoris [Unknown]
  - Blood testosterone increased [Unknown]
  - Foetal exposure during pregnancy [Unknown]
  - Labia enlarged [Unknown]
